FAERS Safety Report 11273491 (Version 1)
Quarter: 2015Q3

REPORT INFORMATION
  Report Type: Spontaneous
  Country: US (occurrence: US)
  Receive Date: 20150715
  Receipt Date: 20150715
  Transmission Date: 20151125
  Serious: No
  Sender: FDA-Public Use
  Company Number: US-BAUSCH-BL-2014-002948

PATIENT
  Age: 44 Year
  Sex: Male

DRUGS (13)
  1. BESIVANCE [Suspect]
     Active Substance: BESIFLOXACIN
     Indication: OFF LABEL USE
     Route: 047
     Dates: start: 20140607, end: 20140610
  2. PROLENSA [Suspect]
     Active Substance: BROMFENAC SODIUM
     Indication: POSTOPERATIVE CARE
     Dates: start: 20140607
  3. PARAFFIN/WOOL FAT [Suspect]
     Active Substance: LANOLIN\PARAFFIN
     Indication: POSTOPERATIVE CARE
     Dates: start: 20140608, end: 20140610
  4. OFLOXACIN OPHTHALMIC [Suspect]
     Active Substance: OFLOXACIN
     Indication: POSTOPERATIVE CARE
     Dates: start: 20140608, end: 20140613
  5. CIPROFLOXACIN. [Suspect]
     Active Substance: CIPROFLOXACIN
     Indication: POSTOPERATIVE CARE
     Dates: start: 20140610
  6. PRED FORTE [Concomitant]
     Active Substance: PREDNISOLONE ACETATE
     Dates: start: 20140613
  7. OFLOXACIN OPHTHALMIC [Suspect]
     Active Substance: OFLOXACIN
     Dates: start: 20140610, end: 20140613
  8. OFLOXACIN OPHTHALMIC [Suspect]
     Active Substance: OFLOXACIN
  9. LOTEMAX [Suspect]
     Active Substance: LOTEPREDNOL ETABONATE
     Indication: POSTOPERATIVE CARE
     Dates: start: 20140608
  10. LOTEMAX [Suspect]
     Active Substance: LOTEPREDNOL ETABONATE
     Indication: POSTOPERATIVE CARE
     Dates: start: 20140608
  11. TETRACAINE [Suspect]
     Active Substance: TETRACAINE\TETRACAINE HYDROCHLORIDE
     Indication: POSTOPERATIVE CARE
     Dates: start: 20140610, end: 20140610
  12. LANOLIN\PARAFFIN [Suspect]
     Active Substance: LANOLIN\PARAFFIN
     Dates: start: 20140610
  13. PRED FORTE [Concomitant]
     Active Substance: PREDNISOLONE ACETATE
     Indication: POSTOPERATIVE CARE
     Dates: start: 20140612, end: 20140613

REACTIONS (4)
  - Photophobia [Unknown]
  - Eye pain [Unknown]
  - Off label use [None]
  - Vision blurred [Unknown]

NARRATIVE: CASE EVENT DATE: 20140610
